FAERS Safety Report 9625669 (Version 1)
Quarter: 2013Q4

REPORT INFORMATION
  Report Type: Spontaneous
  Country: US (occurrence: None)
  Receive Date: 20131015
  Receipt Date: 20131015
  Transmission Date: 20140711
  Serious: Yes (Other)
  Sender: FDA-Public Use
  Company Number: None

PATIENT
  Age: 8 Year
  Sex: Male
  Weight: 30.1 kg

DRUGS (1)
  1. CHLORAPREP [Suspect]
     Indication: ANTIBIOTIC PROPHYLAXIS
     Dosage: SWAB, ONCE, SKIN PREP
     Route: 061
     Dates: start: 20130927

REACTIONS (2)
  - Lymphoma [None]
  - Bacterial infection [None]
